FAERS Safety Report 22350178 (Version 1)
Quarter: 2023Q2

REPORT INFORMATION
  Report Type: Spontaneous
  Country: US (occurrence: US)
  Receive Date: 20230522
  Receipt Date: 20230522
  Transmission Date: 20230722
  Serious: Yes (Other)
  Sender: FDA-Public Use
  Company Number: US-PFIZER INC-202300194867

PATIENT
  Age: 84 Year
  Sex: Female

DRUGS (3)
  1. IBRANCE [Suspect]
     Active Substance: PALBOCICLIB
     Indication: Breast cancer female
     Dosage: 75 MG
  2. IBRANCE [Suspect]
     Active Substance: PALBOCICLIB
     Indication: Bone cancer
  3. IBRANCE [Suspect]
     Active Substance: PALBOCICLIB

REACTIONS (13)
  - Neutropenia [Unknown]
  - Renal cyst ruptured [Unknown]
  - Hepatic cyst ruptured [Unknown]
  - Renal cyst haemorrhage [Unknown]
  - Hepatic haemorrhage [Unknown]
  - Chronic kidney disease [Unknown]
  - Leukopenia [Unknown]
  - Fatigue [Not Recovered/Not Resolved]
  - White blood cell count decreased [Not Recovered/Not Resolved]
  - Tumour marker increased [Unknown]
  - Anaemia [Unknown]
  - Chest pain [Unknown]
  - Frequent bowel movements [Unknown]

NARRATIVE: CASE EVENT DATE: 20190814
